FAERS Safety Report 8325189-3 (Version None)
Quarter: 2012Q2

REPORT INFORMATION
  Report Type: 
  Country: None (occurrence: None)
  Receive Date: 20120501
  Receipt Date: 20120423
  Transmission Date: 20120825
  Serious: Yes (Hospitalization)
  Sender: FDA-Public Use
  Company Number: GB-ASTRAZENECA-2011SE62890

PATIENT
  Age: 46 Year
  Sex: Male

DRUGS (2)
  1. PHENOL [Suspect]
     Route: 037
     Dates: start: 20110928
  2. LIDOCAINE [Suspect]
     Indication: MUSCULOSKELETAL PAIN
     Route: 037
     Dates: start: 20110928, end: 20110928

REACTIONS (4)
  - ARTHRALGIA [None]
  - PRURITUS [None]
  - BURNING SENSATION [None]
  - NEURALGIA [None]
